FAERS Safety Report 7728508-1 (Version None)
Quarter: 2011Q3

REPORT INFORMATION
  Report Type: 
  Country: None (occurrence: None)
  Receive Date: 20110906
  Receipt Date: 20110829
  Transmission Date: 20111222
  Serious: Yes (Other)
  Sender: FDA-Public Use
  Company Number: HR-AMGEN-HRVSP2011044880

PATIENT

DRUGS (1)
  1. ETANERCEPT [Suspect]
     Indication: JUVENILE ARTHRITIS
     Dosage: 0.4 MG/KG, 2 TIMES/WK
     Route: 058

REACTIONS (3)
  - SPLENOMEGALY [None]
  - EPSTEIN-BARR VIRUS INFECTION [None]
  - HYPERSPLENISM [None]
